FAERS Safety Report 12243827 (Version 1)
Quarter: 2016Q2

REPORT INFORMATION
  Report Type: Report from Study
  Country: KR (occurrence: KR)
  Receive Date: 20160406
  Receipt Date: 20160406
  Transmission Date: 20160815
  Serious: Yes (Hospitalization, Other)
  Sender: FDA-Public Use
  Company Number: KR-B.I. PHARMACEUTICALS,INC./RIDGEFIELD-2016-BI-20147RK

PATIENT
  Age: 50 Year
  Sex: Male
  Weight: 70.6 kg

DRUGS (16)
  1. GILOTRIF [Suspect]
     Active Substance: AFATINIB
     Indication: NON-SMALL CELL LUNG CANCER
     Dosage: 40 MG
     Route: 048
     Dates: start: 20160118, end: 20160210
  2. DOXYCYCLINE. [Concomitant]
     Active Substance: DOXYCYCLINE
     Indication: RASH
     Dosage: 200 MG
     Route: 065
     Dates: start: 20160127
  3. RELVAR [Concomitant]
     Active Substance: FLUTICASONE FUROATE\VILANTEROL TRIFENATATE
     Indication: ASTHMA
     Dosage: 25 MG
     Route: 065
     Dates: start: 20160302, end: 20160317
  4. LYRICA [Concomitant]
     Active Substance: PREGABALIN
     Indication: GOUT
     Dosage: 150 MG
     Route: 065
     Dates: start: 20150803
  5. CODEIN [Concomitant]
     Active Substance: CODEINE
     Indication: COUGH
     Dosage: 60 MG
     Route: 065
     Dates: start: 20151221
  6. COUGH SYRUP [Concomitant]
     Active Substance: DEXTROMETHORPHAN HYDROBROMIDE\GUAIFENESIN
     Indication: COUGH
     Dosage: 60 ML
     Route: 065
     Dates: start: 20151221
  7. LEBROCOL [Concomitant]
     Indication: COUGH
     Dosage: 180 MG
     Route: 065
     Dates: start: 20150803
  8. XARELTO [Concomitant]
     Active Substance: RIVAROXABAN
     Indication: PULMONARY EMBOLISM
     Dosage: 30 MG
     Route: 065
     Dates: start: 20160118
  9. VENTOLIN [Concomitant]
     Active Substance: ALBUTEROL SULFATE
     Indication: ASTHMA
     Dosage: 100 MCG
     Route: 065
     Dates: start: 20160318, end: 20160322
  10. GILOTRIF [Suspect]
     Active Substance: AFATINIB
     Dosage: 30 MG
     Route: 048
     Dates: start: 20160211, end: 20160329
  11. ERDOS [Concomitant]
     Indication: COUGH
     Dosage: 900 MG
     Route: 065
     Dates: start: 20150803
  12. TOOBUROL [Concomitant]
     Indication: COUGH
     Dosage: 2 MG
     Route: 065
     Dates: start: 20160127
  13. ENAFON [Concomitant]
     Indication: COUGH
     Dosage: 10 MG
     Route: 065
     Dates: start: 20151228, end: 20160118
  14. TRANSAMIN [Concomitant]
     Active Substance: TRANEXAMIC ACID
     Indication: HAEMOPTYSIS
     Dosage: 750 MG
     Route: 065
     Dates: start: 20160318
  15. ENAFON [Concomitant]
     Dosage: 5 MG
     Route: 065
     Dates: start: 20160302
  16. VENTOLIN [Concomitant]
     Active Substance: ALBUTEROL SULFATE
     Dosage: 10 MG
     Route: 065
     Dates: start: 20160325

REACTIONS (2)
  - Interstitial lung disease [Not Recovered/Not Resolved]
  - Pleural effusion [Not Recovered/Not Resolved]

NARRATIVE: CASE EVENT DATE: 20160305
